FAERS Safety Report 15408545 (Version 1)
Quarter: 2018Q3

REPORT INFORMATION
  Report Type: Report from Study
  Country: IT (occurrence: IT)
  Receive Date: 20180920
  Receipt Date: 20180920
  Transmission Date: 20181010
  Serious: Yes (Hospitalization)
  Sender: FDA-Public Use
  Company Number: IT-TEVA-2018-IT-956630

PATIENT
  Age: 41 Year
  Sex: Male

DRUGS (4)
  1. CARBAMAZEPINE. [Suspect]
     Active Substance: CARBAMAZEPINE
     Indication: DRUG ABUSE
     Route: 048
     Dates: start: 20180504, end: 20180504
  2. GARDENALE [Suspect]
     Active Substance: PHENOBARBITAL
     Indication: DRUG ABUSE
     Route: 048
     Dates: start: 20180504, end: 20180504
  3. PHENOBARBITAL SODIUM. [Suspect]
     Active Substance: PHENOBARBITAL SODIUM
     Indication: DRUG ABUSE
     Route: 048
     Dates: start: 20180504, end: 20180504
  4. TEGRETOL [Suspect]
     Active Substance: CARBAMAZEPINE
     Indication: DRUG ABUSE
     Route: 048
     Dates: start: 20180504, end: 20180504

REACTIONS (3)
  - Toxicity to various agents [Recovering/Resolving]
  - Confusional state [Recovering/Resolving]
  - Disorientation [Recovering/Resolving]

NARRATIVE: CASE EVENT DATE: 20180504
